FAERS Safety Report 8128299-9 (Version None)
Quarter: 2012Q1

REPORT INFORMATION
  Report Type: 
  Country: None (occurrence: None)
  Receive Date: 20120210
  Receipt Date: 20120202
  Transmission Date: 20120608
  Serious: Yes (Hospitalization, Other)
  Sender: FDA-Public Use
  Company Number: US-ROCHE-1036995

PATIENT
  Age: 57 Year
  Sex: Male
  Weight: 71 kg

DRUGS (2)
  1. TARCEVA [Suspect]
     Indication: ADENOCARCINOMA PANCREAS
     Route: 048
     Dates: start: 20120109, end: 20120124
  2. VISMODEGIB [Suspect]
     Indication: ADENOCARCINOMA PANCREAS
     Route: 048
     Dates: start: 20120109, end: 20120124

REACTIONS (5)
  - INCORRECT DOSE ADMINISTERED [None]
  - RENAL NEOPLASM [None]
  - URINARY TRACT INFECTION [None]
  - UROSEPSIS [None]
  - PERINEPHRIC ABSCESS [None]
